FAERS Safety Report 7152976-X (Version None)
Quarter: 2010Q4

REPORT INFORMATION
  Report Type: 
  Country: None (occurrence: None)
  Receive Date: 20101209
  Receipt Date: 20101209
  Transmission Date: 20110411
  Serious: Yes (Hospitalization)
  Sender: FDA-Public Use
  Company Number: None

PATIENT
  Age: 50 Year
  Sex: Male

DRUGS (1)
  1. ACTEMRA [Suspect]
     Indication: RHEUMATOID ARTHRITIS
     Dosage: MONTHLY IV DRIP
     Route: 041
     Dates: start: 20100414, end: 20101101

REACTIONS (2)
  - DEVICE RELATED INFECTION [None]
  - KLEBSIELLA INFECTION [None]
